FAERS Safety Report 23396510 (Version 5)
Quarter: 2024Q1

REPORT INFORMATION
  Report Type: Spontaneous
  Country: US (occurrence: US)
  Receive Date: 20240112
  Receipt Date: 20240125
  Transmission Date: 20240410
  Serious: Yes (Other)
  Sender: FDA-Public Use
  Company Number: US-UNITED THERAPEUTICS-UNT-2024-000099

PATIENT
  Age: 55 Year
  Sex: Female
  Weight: 56.689 kg

DRUGS (15)
  1. TYVASO [Suspect]
     Active Substance: TREPROSTINIL
     Indication: Pulmonary arterial hypertension
     Dosage: UNK
     Dates: end: 20240102
  2. TYVASO DPI [Suspect]
     Active Substance: TREPROSTINIL
     Indication: Pulmonary arterial hypertension
     Dosage: 48 ?G, QID
     Dates: start: 20240102, end: 202401
  3. TYVASO DPI [Suspect]
     Active Substance: TREPROSTINIL
     Dosage: 112 ?G, QID (48 ?G + 64 ?G CARTRIDGE)
     Dates: start: 202401, end: 20240107
  4. TYVASO DPI [Suspect]
     Active Substance: TREPROSTINIL
     Dosage: 96 ?G, QID (32 ?G+64 ?G) (DOSE DECREASED)
     Dates: start: 20240107, end: 202401
  5. TYVASO DPI [Suspect]
     Active Substance: TREPROSTINIL
     Dosage: 32 ?G, QID
     Dates: start: 202401, end: 20240117
  6. TYVASO DPI [Suspect]
     Active Substance: TREPROSTINIL
     Indication: Pulmonary arterial hypertension
     Dosage: UNK
  7. TYVASO DPI [Suspect]
     Active Substance: TREPROSTINIL
     Indication: Pulmonary arterial hypertension
     Dosage: UNK
  8. TYVASO DPI [Suspect]
     Active Substance: TREPROSTINIL
     Indication: Pulmonary arterial hypertension
     Dosage: UNK
  9. SPIRIVA [Concomitant]
     Active Substance: TIOTROPIUM BROMIDE MONOHYDRATE
     Indication: Product used for unknown indication
     Dosage: UNK
     Route: 065
  10. LASIX [Concomitant]
     Active Substance: FUROSEMIDE
     Indication: Product used for unknown indication
     Dosage: UNK
     Route: 065
  11. MELATONIN [Concomitant]
     Active Substance: MELATONIN
     Indication: Product used for unknown indication
     Dosage: UNK
     Route: 065
  12. ALBUTEROL SULFATE [Concomitant]
     Active Substance: ALBUTEROL SULFATE
     Indication: Product used for unknown indication
     Dosage: UNK
     Route: 065
  13. Hair skin nails [Concomitant]
     Indication: Product used for unknown indication
     Dosage: UNK
     Route: 065
  14. SILDENAFIL CITRATE [Concomitant]
     Active Substance: SILDENAFIL CITRATE
     Indication: Product used for unknown indication
     Dosage: UNK
     Route: 065
  15. OXYGEN [Concomitant]
     Active Substance: OXYGEN
     Indication: Product used for unknown indication
     Dosage: UNK
     Route: 065

REACTIONS (15)
  - Loss of consciousness [Unknown]
  - Dizziness [Unknown]
  - Headache [Unknown]
  - Cough [Unknown]
  - Blood pressure systolic decreased [Unknown]
  - Dyspnoea [Unknown]
  - Feeling abnormal [Unknown]
  - Hot flush [Unknown]
  - Flushing [Unknown]
  - Insomnia [Unknown]
  - Orthopnoea [Unknown]
  - Diarrhoea [Unknown]
  - Decreased appetite [Unknown]
  - Loss of personal independence in daily activities [Unknown]
  - Intentional dose omission [Unknown]

NARRATIVE: CASE EVENT DATE: 20240104
